FAERS Safety Report 11971715 (Version 1)
Quarter: 2016Q1

REPORT INFORMATION
  Report Type: Spontaneous
  Country: TR (occurrence: TR)
  Receive Date: 20160128
  Receipt Date: 20160128
  Transmission Date: 20160526
  Serious: Yes (Life-Threatening, Hospitalization)
  Sender: FDA-Public Use
  Company Number: TR-MYLANLABS-2012S1023386

PATIENT

DRUGS (6)
  1. CARNITIN [Concomitant]
     Indication: CYSTINOSIS
     Dosage: 2 ML,BID
     Dates: start: 20100410
  2. MERCAPTAMINE [Suspect]
     Active Substance: CYSTEAMINE
     Indication: CYSTINOSIS
     Dosage: UNK UNK,QD
     Route: 048
     Dates: start: 20100410, end: 20121027
  3. SCHOLLS SOLUTION (POTASSIUM CITRATE) [Suspect]
     Active Substance: CITRIC ACID MONOHYDRATE\POTASSIUM CITRATE\SODIUM CITRATE
     Indication: CYSTINOSIS
     Dosage: 72 ML,QD
     Dates: start: 20101004
  4. CALCITRIOL. [Concomitant]
     Active Substance: CALCITRIOL
     Indication: CYSTINOSIS
     Dosage: .25 ?G,QD
     Route: 048
     Dates: start: 20100410
  5. ALCOTRAL [Concomitant]
     Indication: CYSTINOSIS
     Dosage: 10 ML,BID
     Dates: start: 20100410
  6. LALBIAL [Concomitant]
     Indication: CYSTINOSIS
     Dosage: UNK UNK,QD
     Dates: start: 20121001

REACTIONS (2)
  - Stevens-Johnson syndrome [Recovering/Resolving]
  - Wound [Not Recovered/Not Resolved]

NARRATIVE: CASE EVENT DATE: 20121027
